FAERS Safety Report 12378893 (Version 1)
Quarter: 2016Q2

REPORT INFORMATION
  Report Type: Spontaneous
  Country: US (occurrence: US)
  Receive Date: 20160517
  Receipt Date: 20160517
  Transmission Date: 20160815
  Serious: No
  Sender: FDA-Public Use
  Company Number: US-RELYPSA-RLY2016000254

PATIENT

DRUGS (8)
  1. ENALAPRIL MALEATE. [Concomitant]
     Active Substance: ENALAPRIL MALEATE
  2. VELTASSA [Suspect]
     Active Substance: PATIROMER
     Indication: HYPERKALAEMIA
  3. PHOSLO [Concomitant]
     Active Substance: CALCIUM ACETATE
  4. EPOGEN [Concomitant]
     Active Substance: ERYTHROPOIETIN
  5. CALCITRIOL. [Concomitant]
     Active Substance: CALCITRIOL
  6. SENSIPAR [Concomitant]
     Active Substance: CINACALCET HYDROCHLORIDE
  7. AMLODIPINE                         /00972402/ [Concomitant]
     Active Substance: AMLODIPINE BESYLATE
  8. MOBIC [Concomitant]
     Active Substance: MELOXICAM

REACTIONS (1)
  - Vomiting [Unknown]
